FAERS Safety Report 5445380-3 (Version None)
Quarter: 2007Q3

REPORT INFORMATION
  Report Type: 
  Country: None (occurrence: None)
  Receive Date: 20070906
  Receipt Date: 20070613
  Transmission Date: 20080115
  Serious: No
  Sender: FDA-Public Use
  Company Number: A0654107A

PATIENT
  Age: 54 Year
  Sex: Female

DRUGS (17)
  1. REQUIP [Suspect]
     Indication: RESTLESS LEGS SYNDROME
     Route: 048
     Dates: start: 20061201
  2. CYMBALTA [Concomitant]
     Indication: PAIN PROPHYLAXIS
     Dosage: 60MG PER DAY
     Route: 048
  3. PROVIGIL [Concomitant]
     Dosage: 200MG IN THE MORNING
     Route: 048
  4. VAGIFEM [Concomitant]
     Dosage: 1TAB TWO TIMES PER WEEK
     Route: 067
  5. EVOXAC [Concomitant]
     Indication: DRY MOUTH
     Dosage: 30MG TWICE PER DAY
     Route: 048
  6. PLAQUENIL [Concomitant]
     Dosage: 200MG TWICE PER DAY
     Route: 048
  7. FOSAMAX [Concomitant]
     Dosage: 70MG WEEKLY
     Route: 048
  8. VITAMIN D [Concomitant]
     Dosage: 50000IU WEEKLY
     Route: 048
  9. PROTONIX [Concomitant]
     Dosage: 40MG PER DAY
     Route: 048
  10. ESTRACE [Concomitant]
     Route: 067
  11. ZOLOFT [Concomitant]
     Indication: DEPRESSION
     Dosage: 50MG AT NIGHT
     Route: 048
  12. VALTREX [Concomitant]
     Dosage: 1G PER DAY
     Route: 048
  13. RESTASIS [Concomitant]
     Route: 047
  14. ZYRTEC [Concomitant]
     Indication: MULTIPLE ALLERGIES
     Dosage: 5MG AS REQUIRED
     Route: 048
  15. LOTREL [Concomitant]
     Indication: BLOOD PRESSURE
     Route: 048
  16. LOPROX [Concomitant]
     Route: 061
  17. ESTRATEST [Concomitant]
     Dates: end: 20060531

REACTIONS (1)
  - ILL-DEFINED DISORDER [None]
